FAERS Safety Report 10943845 (Version 1)
Quarter: 2015Q1

REPORT INFORMATION
  Report Type: Spontaneous
  Country: US (occurrence: US)
  Receive Date: 20150322
  Receipt Date: 20150322
  Transmission Date: 20150721
  Serious: No
  Sender: FDA-Public Use
  Company Number: US-ELI_LILLY_AND_COMPANY-US201412002782

PATIENT
  Age: 59 Year
  Sex: Female

DRUGS (1)
  1. TRULICITY [Suspect]
     Active Substance: DULAGLUTIDE
     Indication: TYPE 2 DIABETES MELLITUS
     Dosage: 1.5 MG, UNK
     Route: 065
     Dates: start: 20141202

REACTIONS (3)
  - Abdominal discomfort [Unknown]
  - Vomiting projectile [Unknown]
  - Nausea [Unknown]

NARRATIVE: CASE EVENT DATE: 20141202
